FAERS Safety Report 7521818-2 (Version None)
Quarter: 2011Q2

REPORT INFORMATION
  Report Type: 
  Country: None (occurrence: None)
  Receive Date: 20110603
  Receipt Date: 20110531
  Transmission Date: 20111010
  Serious: Yes (Other)
  Sender: FDA-Public Use
  Company Number: US-AMGEN-USASP2011028417

PATIENT
  Age: 75 Year
  Sex: Female

DRUGS (1)
  1. NPLATE [Suspect]
     Indication: IDIOPATHIC THROMBOCYTOPENIC PURPURA
     Dosage: 2 MG/KG, UNK
     Dates: start: 20101021

REACTIONS (3)
  - LABORATORY TEST ABNORMAL [None]
  - THROMBOCYTOPENIA [None]
  - ANAEMIA [None]
